FAERS Safety Report 15214512 (Version 1)
Quarter: 2018Q3

REPORT INFORMATION
  Report Type: Report from Study
  Country: FR (occurrence: FR)
  Receive Date: 20180730
  Receipt Date: 20180730
  Transmission Date: 20181010
  Serious: Yes (Other)
  Sender: FDA-Public Use
  Company Number: FR-SA-2018SA202510

PATIENT
  Age: 75 Year
  Sex: Male

DRUGS (3)
  1. ALEMTUZUMAB [Suspect]
     Active Substance: ALEMTUZUMAB
     Dosage: 30 MG,2PER WEEK
     Route: 041
  2. ALEMTUZUMAB [Suspect]
     Active Substance: ALEMTUZUMAB
     Indication: T-CELL PROLYMPHOCYTIC LEUKAEMIA
     Dosage: 3 MG, 2  PER WEEK
     Route: 041
     Dates: start: 20170725
  3. ALEMTUZUMAB [Suspect]
     Active Substance: ALEMTUZUMAB
     Dosage: 10 MG, 2 PER WEEK
     Route: 041

REACTIONS (2)
  - Disease progression [Unknown]
  - Leukaemia recurrent [Unknown]
